FAERS Safety Report 16149788 (Version 3)
Quarter: 2019Q2

REPORT INFORMATION
  Report Type: Report from Study
  Country: US (occurrence: US)
  Receive Date: 20190402
  Receipt Date: 20190426
  Transmission Date: 20190711
  Serious: Yes (Other)
  Sender: FDA-Public Use
  Company Number: US-ARIAD PHARMACEUTICALS, INC-2016US006082

PATIENT
  Sex: Female

DRUGS (4)
  1. PONATINIB [Suspect]
     Active Substance: PONATINIB
     Dosage: 15 MILLIGRAM, QD
     Route: 048
  2. PONATINIB [Suspect]
     Active Substance: PONATINIB
     Indication: CHRONIC MYELOID LEUKAEMIA (IN REMISSION)
     Dosage: 15 MILLIGRAM, QD
     Route: 048
     Dates: start: 20160108
  3. PONATINIB [Suspect]
     Active Substance: PONATINIB
     Dosage: 15 MILLIGRAM, QD
     Route: 048
  4. PONATINIB [Suspect]
     Active Substance: PONATINIB
     Dosage: 30 MILLIGRAM, QD
     Route: 048

REACTIONS (13)
  - Constipation [Unknown]
  - Arthralgia [Not Recovered/Not Resolved]
  - Gingivitis [Not Recovered/Not Resolved]
  - Myalgia [Not Recovered/Not Resolved]
  - Blood pressure increased [Not Recovered/Not Resolved]
  - Peripheral swelling [Unknown]
  - Nausea [Unknown]
  - Skin disorder [Unknown]
  - Neuroma [Not Recovered/Not Resolved]
  - Rash erythematous [Unknown]
  - Headache [Unknown]
  - Bone pain [Unknown]
  - Tooth disorder [Not Recovered/Not Resolved]
